FAERS Safety Report 8017200-4 (Version None)
Quarter: 2012Q1

REPORT INFORMATION
  Report Type: 
  Country: None (occurrence: None)
  Receive Date: 20120102
  Receipt Date: 20111223
  Transmission Date: 20120608
  Serious: Yes (Other)
  Sender: FDA-Public Use
  Company Number: PHHY2011JP112109

PATIENT
  Age: 15 Year
  Sex: Female

DRUGS (6)
  1. METHYLPREDNISOLONE [Suspect]
     Dosage: 1 G, UNK
  2. FRESH FROZEN PLASMA [Concomitant]
     Indication: COAGULOPATHY
  3. FUROSEMIDE [Concomitant]
     Indication: COAGULOPATHY
  4. METHYLPREDNISOLONE [Suspect]
     Dosage: 500 MG, UNK
  5. CYCLOSPORINE [Concomitant]
     Indication: COAGULOPATHY
     Route: 048
  6. METHYLPREDNISOLONE [Suspect]
     Dosage: 500 MG, UNK

REACTIONS (10)
  - PALPITATIONS [None]
  - CUSHINGOID [None]
  - ARRHYTHMIA [None]
  - HEPATOSPLENOMEGALY [None]
  - HEART RATE IRREGULAR [None]
  - ATRIAL FIBRILLATION [None]
  - ERYTHEMA [None]
  - DRUG INEFFECTIVE [None]
  - CHEST DISCOMFORT [None]
  - BODY TEMPERATURE DECREASED [None]
